FAERS Safety Report 21009103 (Version 1)
Quarter: 2022Q2

REPORT INFORMATION
  Report Type: Report from Study
  Country: US (occurrence: US)
  Receive Date: 20220627
  Receipt Date: 20220627
  Transmission Date: 20220721
  Serious: Yes (Hospitalization, Other)
  Sender: FDA-Public Use
  Company Number: US-BAYER-2022A084035

PATIENT
  Age: 68 Year
  Sex: Female
  Weight: 70.6 kg

DRUGS (4)
  1. COPANLISIB [Suspect]
     Active Substance: COPANLISIB
     Indication: Fallopian tube cancer
     Dosage: 120 MG
     Route: 048
     Dates: start: 20220303
  2. COPANLISIB [Suspect]
     Active Substance: COPANLISIB
     Indication: Fallopian tube cancer
     Dosage: 120 MG, LAST ADMINISTERED DATE 07-APR-2022
     Route: 048
     Dates: start: 20220331
  3. COPANLISIB [Suspect]
     Active Substance: COPANLISIB
     Indication: Fallopian tube cancer
     Dosage: 120 MG,
     Route: 048
     Dates: start: 20220531
  4. NIVOLUMAB [Suspect]
     Active Substance: NIVOLUMAB
     Indication: Fallopian tube cancer
     Dosage: 480 MG, LAST DOSE ON 31-MAR-2022
     Route: 048

REACTIONS (3)
  - Alanine aminotransferase increased [Recovered/Resolved]
  - Aspartate aminotransferase increased [Recovered/Resolved]
  - Platelet count decreased [Recovered/Resolved]

NARRATIVE: CASE EVENT DATE: 20220414
